FAERS Safety Report 8233194-0 (Version None)
Quarter: 2012Q1

REPORT INFORMATION
  Report Type: 
  Country: None (occurrence: None)
  Receive Date: 20120326
  Receipt Date: 20120320
  Transmission Date: 20120608
  Serious: No
  Sender: FDA-Public Use
  Company Number: US-PFIZER INC-2012031645

PATIENT
  Sex: Female

DRUGS (1)
  1. MECLIZINE HCL [Suspect]
     Indication: VERTIGO
     Dosage: 25 MG TO 50 MG QID
     Dates: start: 20100501, end: 20100601

REACTIONS (2)
  - MALAISE [None]
  - DRUG INEFFECTIVE [None]
